FAERS Safety Report 12193507 (Version 2)
Quarter: 2016Q2

REPORT INFORMATION
  Report Type: Spontaneous
  Country: US (occurrence: US)
  Receive Date: 20160320
  Receipt Date: 20160524
  Transmission Date: 20160815
  Serious: No
  Sender: FDA-Public Use
  Company Number: US-TEVA-642888USA

PATIENT
  Age: 53 Year
  Sex: Male

DRUGS (11)
  1. MULTIVITAMIN [Concomitant]
     Active Substance: VITAMINS
  2. OMEGA 3 [Concomitant]
     Active Substance: OMEGA-3 FATTY ACIDS
  3. OXYBUTYNIN [Concomitant]
     Active Substance: OXYBUTYNIN
  4. PREDNISONE. [Concomitant]
     Active Substance: PREDNISONE
  5. AMANTADINE [Concomitant]
     Active Substance: AMANTADINE
  6. BACLOFEN. [Concomitant]
     Active Substance: BACLOFEN
  7. MAGNESIUM [Concomitant]
     Active Substance: MAGNESIUM
  8. VITAMIN D [Concomitant]
     Active Substance: CHOLECALCIFEROL
  9. COPAXONE [Suspect]
     Active Substance: GLATIRAMER ACETATE
     Indication: MULTIPLE SCLEROSIS
     Route: 058
     Dates: start: 201405
  10. FLONASE [Concomitant]
     Active Substance: FLUTICASONE PROPIONATE
  11. LISINOPRIL. [Concomitant]
     Active Substance: LISINOPRIL

REACTIONS (2)
  - Nasopharyngitis [Unknown]
  - Nasal congestion [Unknown]

NARRATIVE: CASE EVENT DATE: 201510
